FAERS Safety Report 8900275 (Version 1)
Quarter: 2012Q4

REPORT INFORMATION
  Report Type: 
  Country: IT (occurrence: IT)
  Receive Date: 20121109
  Receipt Date: 20121109
  Transmission Date: 20130627
  Serious: Yes (Other)
  Sender: FDA-Public Use
  Company Number: IT-JNJFOC-20121102283

PATIENT
  Age: 19 Year
  Sex: Female

DRUGS (1)
  1. TOPAMAX [Suspect]
     Indication: PRODUCT USED FOR UNKNOWN INDICATION
     Route: 048
     Dates: start: 20121102, end: 20121102

REACTIONS (3)
  - Self injurious behaviour [Unknown]
  - Sluggishness [Unknown]
  - Intentional overdose [Unknown]
